FAERS Safety Report 15683927 (Version 1)
Quarter: 2018Q4

REPORT INFORMATION
  Report Type: Spontaneous
  Country: US (occurrence: US)
  Receive Date: 20181204
  Receipt Date: 20181204
  Transmission Date: 20190205
  Serious: No
  Sender: FDA-Public Use
  Company Number: US-AMGEN-USASP2018170886

PATIENT
  Age: 72 Year
  Sex: Female

DRUGS (12)
  1. SAGE. [Concomitant]
     Active Substance: SAGE
     Dosage: UNK
  2. GARLIC. [Concomitant]
     Active Substance: GARLIC
     Dosage: UNK
  3. VITAMIN D [Concomitant]
     Active Substance: CHOLECALCIFEROL
     Dosage: UNK UNK, QD
  4. ZANAFLEX [Concomitant]
     Active Substance: TIZANIDINE HYDROCHLORIDE
     Indication: MUSCLE DISORDER
     Dosage: UNK, 1/2 TABLET
  5. VITAMIN B12 [Concomitant]
     Active Substance: CYANOCOBALAMIN
     Dosage: 250 MG, QWK
  6. CAFFEINE. [Concomitant]
     Active Substance: CAFFEINE
     Dosage: UNK
  7. PROLIA [Suspect]
     Active Substance: DENOSUMAB
     Indication: OSTEOPOROSIS
     Dosage: 60 MG, UNK
     Route: 065
     Dates: start: 20180511, end: 2018
  8. CALCIUM + VITAMIN D [Concomitant]
     Active Substance: CALCIUM\VITAMIN D
     Dosage: UNK UNK, QD
  9. TURMERIC [Concomitant]
     Active Substance: HERBALS\TURMERIC
     Dosage: UNK
  10. SYNTHROID [Concomitant]
     Active Substance: LEVOTHYROXINE SODIUM
     Dosage: UNK UNK, QD
  11. BIOFREEZE [Concomitant]
     Active Substance: MENTHOL
     Dosage: UNK UNK, AS NECESSARY
  12. COENZYME Q10 [Concomitant]
     Active Substance: UBIDECARENONE
     Dosage: UNK

REACTIONS (10)
  - Back pain [Unknown]
  - Pain in extremity [Not Recovered/Not Resolved]
  - Pain in jaw [Recovered/Resolved]
  - Bladder disorder [Unknown]
  - Sleep disorder due to a general medical condition [Unknown]
  - Mobility decreased [Unknown]
  - Muscle spasms [Unknown]
  - Dysphonia [Unknown]
  - Jaw disorder [Recovered/Resolved]
  - Asthenia [Unknown]

NARRATIVE: CASE EVENT DATE: 2018
